FAERS Safety Report 5096573-9 (Version None)
Quarter: 2006Q3

REPORT INFORMATION
  Report Type: 
  Country: None (occurrence: None)
  Receive Date: 20060830
  Receipt Date: 20060817
  Transmission Date: 20061208
  Serious: Yes (Other)
  Sender: FDA-Public Use
  Company Number: 2006101393

PATIENT
  Age: 35 Year
  Sex: Female

DRUGS (5)
  1. NEURONTIN [Suspect]
     Indication: EPILEPSY
     Dosage: 300 MG (300 MG, 1 IN 1 D), ORAL
     Route: 048
     Dates: start: 20060711
  2. PROMETHAZINE [Concomitant]
  3. ROHYPNOL (FLUNITRAZEPAM) [Concomitant]
  4. LEXOTAX (BROMAZEPAM) [Concomitant]
  5. CLORANA (HYDROCHLOROTHIAZIDE) [Concomitant]

REACTIONS (8)
  - ASTHENIA [None]
  - CRYING [None]
  - DEPRESSION [None]
  - DIARRHOEA [None]
  - DIZZINESS [None]
  - HYPOAESTHESIA ORAL [None]
  - VISUAL ACUITY REDUCED [None]
  - VOMITING [None]
